FAERS Safety Report 7036313-7 (Version None)
Quarter: 2010Q4

REPORT INFORMATION
  Report Type: 
  Country: None (occurrence: None)
  Receive Date: 20101008
  Receipt Date: 20101001
  Transmission Date: 20110411
  Serious: Yes (Death)
  Sender: FDA-Public Use
  Company Number: US-AMGEN-QUU442925

PATIENT
  Sex: Female

DRUGS (5)
  1. NPLATE [Suspect]
     Indication: IDIOPATHIC THROMBOCYTOPENIC PURPURA
     Dates: start: 20100409, end: 20100428
  2. IMMU-G [Concomitant]
     Dates: start: 20100312
  3. RITUXIMAB [Concomitant]
     Dates: start: 20040601, end: 20100326
  4. RITUXIMAB [Concomitant]
     Dates: start: 20040909, end: 20041020
  5. RITUXIMAB [Concomitant]
     Dates: start: 20100319, end: 20100326

REACTIONS (1)
  - PNEUMONIA [None]
